FAERS Safety Report 16555194 (Version 1)
Quarter: 2019Q3

REPORT INFORMATION
  Report Type: Report from Study
  Country: US (occurrence: US)
  Receive Date: 20190710
  Receipt Date: 20190710
  Transmission Date: 20191004
  Serious: Yes (Hospitalization)
  Sender: FDA-Public Use
  Company Number: US-VERTEX PHARMACEUTICALS-2015-004621

PATIENT
  Age: 25 Year
  Sex: Female

DRUGS (11)
  1. PERCOCET [Concomitant]
     Active Substance: ACETAMINOPHEN\OXYCODONE HYDROCHLORIDE
  2. LANTUS [Concomitant]
     Active Substance: INSULIN GLARGINE
  3. ZANTAC [Concomitant]
     Active Substance: RANITIDINE HYDROCHLORIDE
  4. PANCREASE MT [Concomitant]
     Active Substance: PANCRELIPASE
  5. ORKAMBI [Suspect]
     Active Substance: IVACAFTOR\LUMACAFTOR
     Indication: CYSTIC FIBROSIS
     Dosage: 2 DF(200/125 MG EACH), BID WITH FAT CONTAINING FOOD
     Route: 048
     Dates: start: 20151010, end: 20151230
  6. BENADRYL [Concomitant]
     Active Substance: DIPHENHYDRAMINE HYDROCHLORIDE
  7. HUMALOG [Concomitant]
     Active Substance: INSULIN LISPRO
  8. ALBUTEROL. [Concomitant]
     Active Substance: ALBUTEROL
  9. PROBIOTIC [Concomitant]
     Active Substance: PROBIOTICS NOS
  10. SINGULAIR [Concomitant]
     Active Substance: MONTELUKAST SODIUM
  11. CYPROHEPTADINE. [Concomitant]
     Active Substance: CYPROHEPTADINE

REACTIONS (10)
  - Confusional state [Recovered/Resolved]
  - Nausea [Unknown]
  - Influenza like illness [Recovering/Resolving]
  - Infective pulmonary exacerbation of cystic fibrosis [Recovering/Resolving]
  - Cough [Unknown]
  - Fatigue [Recovered/Resolved]
  - Pulmonary function test decreased [Unknown]
  - Mood altered [Recovered/Resolved]
  - Productive cough [Recovering/Resolving]
  - Nasopharyngitis [Recovered/Resolved]

NARRATIVE: CASE EVENT DATE: 2015
